FAERS Safety Report 10688239 (Version 4)
Quarter: 2015Q1

REPORT INFORMATION
  Report Type: Report from Study
  Country: JP (occurrence: JP)
  Receive Date: 20150102
  Receipt Date: 20150206
  Transmission Date: 20150720
  Serious: Yes (Hospitalization, Other)
  Sender: FDA-Public Use
  Company Number: JP-PFIZER INC-2014358666

PATIENT
  Age: 34 Year
  Sex: Male
  Weight: 72 kg

DRUGS (10)
  1. MYSTAN [Concomitant]
     Active Substance: CLOBAZAM
     Indication: EPILEPSY
     Dosage: 5 MG, UNK
     Route: 048
  2. ADONA [Concomitant]
     Active Substance: CARBAZOCHROME SODIUM SULFONATE
     Indication: PROPHYLAXIS
     Dosage: 50 MG, UNK
     Dates: start: 20141125
  3. FOSPHENYTOIN SODIUM. [Suspect]
     Active Substance: FOSPHENYTOIN SODIUM
     Indication: CONVULSION PROPHYLAXIS
     Dosage: 6.9 MG/KG AT 8.3 MG/KG/MIN IN 0.9% PHYSIOLOGICAL SALINE (DILUTIION RATIO: 1: 15)
     Dates: start: 20141125
  4. CEFAZOLIN [Concomitant]
     Active Substance: CEFAZOLIN
     Indication: PROPHYLAXIS
     Dosage: 3 G, UNK
     Dates: start: 20141125, end: 20141129
  5. HYDANTOL [Concomitant]
     Active Substance: PHENYTOIN SODIUM
     Indication: EPILEPSY
     Dosage: 125 MG, UNK
     Route: 048
  6. RANITIDINE [Concomitant]
     Active Substance: RANITIDINE\RANITIDINE HYDROCHLORIDE
     Indication: PROPHYLAXIS
     Dosage: 50 MG, UNK
     Dates: start: 20141125, end: 20141203
  7. ULTIVA [Concomitant]
     Active Substance: REMIFENTANIL HYDROCHLORIDE
     Indication: SURGERY
     Dosage: 5 MG, UNK
     Dates: start: 20141125
  8. FENTANYL. [Concomitant]
     Active Substance: FENTANYL
     Indication: SURGERY
     Dosage: 0.6 MG, UNK
     Dates: start: 20141125
  9. TRANSAMIN [Concomitant]
     Active Substance: TRANEXAMIC ACID
     Indication: PROPHYLAXIS
     Dosage: 100 MG, UNK
     Dates: start: 20141125
  10. ALEVIATIN [Concomitant]
     Active Substance: PHENYTOIN SODIUM
     Indication: EPILEPSY
     Dosage: 200 MG, UNK
     Route: 048

REACTIONS (1)
  - Cerebral infarction [Recovering/Resolving]

NARRATIVE: CASE EVENT DATE: 20141126
